FAERS Safety Report 8463961-X (Version None)
Quarter: 2012Q2

REPORT INFORMATION
  Report Type: 
  Country: None (occurrence: None)
  Receive Date: 20120625
  Receipt Date: 20120614
  Transmission Date: 20120825
  Serious: Yes (Other)
  Sender: FDA-Public Use
  Company Number: US-ASTRAZENECA-2009UW11622

PATIENT
  Age: 55 Year
  Sex: Female
  Weight: 78 kg

DRUGS (12)
  1. LASIX [Concomitant]
     Route: 048
  2. CARVEDILOL [Concomitant]
     Route: 048
  3. EPINEPHRINE [Concomitant]
     Dosage: 1 MG/ML
  4. ASPIRIN [Concomitant]
  5. RANITIDINE [Concomitant]
     Route: 048
  6. COREG CR [Concomitant]
  7. NEXIUM [Suspect]
     Route: 048
     Dates: start: 20010101
  8. PRILOSEC [Suspect]
     Route: 048
  9. DICYCLOMINE [Concomitant]
  10. ALDACTONE [Concomitant]
  11. LISINOPRIL [Concomitant]
     Route: 048
  12. DIGOXIN [Concomitant]

REACTIONS (20)
  - COUGH [None]
  - TERMINAL INSOMNIA [None]
  - DYSPNOEA [None]
  - BACK DISORDER [None]
  - MUSCULOSKELETAL DISCOMFORT [None]
  - THIRST [None]
  - ANAEMIA [None]
  - HEADACHE [None]
  - CONSTIPATION [None]
  - ARTHRALGIA [None]
  - PLATELET COUNT DECREASED [None]
  - DRUG INEFFECTIVE [None]
  - CARDIAC FAILURE [None]
  - EPISTAXIS [None]
  - ARTHRITIS [None]
  - DYSPHAGIA [None]
  - RECTAL HAEMORRHAGE [None]
  - TEMPERATURE INTOLERANCE [None]
  - SINUS DISORDER [None]
  - RASH [None]
